FAERS Safety Report 7806528-6 (Version None)
Quarter: 2011Q4

REPORT INFORMATION
  Report Type: 
  Country: None (occurrence: None)
  Receive Date: 20111005
  Receipt Date: 20110919
  Transmission Date: 20120403
  Serious: Yes (Death, Hospitalization)
  Sender: FDA-Public Use
  Company Number: WAES 1110USA00007

PATIENT
  Age: 67 Year
  Sex: Male

DRUGS (3)
  1. CAP VORINOSTAT UNK [Suspect]
     Indication: GLIOBLASTOMA MULTIFORME
     Dosage: 200 MG/BID/PO
     Route: 048
     Dates: start: 20110902, end: 20110908
  2. TEMOZOLOMIDE [Suspect]
     Indication: GLIOBLASTOMA MULTIFORME
     Dosage: 240 MG/DAILY/PO
     Route: 048
     Dates: start: 20110902, end: 20110908
  3. TAB ERLOTINIB HYDROCHLORIDE UNK [Suspect]
     Indication: GLIOBLASTOMA MULTIFORME
     Dosage: 200 MG/DAILY/PO
     Route: 048
     Dates: start: 20110902, end: 20110913

REACTIONS (11)
  - ASTHENIA [None]
  - RESPIRATORY DISTRESS [None]
  - DIARRHOEA [None]
  - SOMNOLENCE [None]
  - URINARY TRACT INFECTION [None]
  - RENAL FAILURE [None]
  - NEUTROPENIA [None]
  - CULTURE URINE POSITIVE [None]
  - GENERAL PHYSICAL HEALTH DETERIORATION [None]
  - PNEUMONITIS [None]
  - ESCHERICHIA INFECTION [None]
